FAERS Safety Report 20641626 (Version 1)
Quarter: 2022Q1

REPORT INFORMATION
  Report Type: Spontaneous
  Country: US (occurrence: US)
  Receive Date: 20220328
  Receipt Date: 20220328
  Transmission Date: 20220423
  Serious: Yes (Hospitalization, Other)
  Sender: FDA-Public Use
  Company Number: US-ALLERGAN-2206170US

PATIENT
  Age: 44 Year
  Sex: Female

DRUGS (16)
  1. PAROXETINE [Suspect]
     Active Substance: PAROXETINE
     Indication: Depression
     Dosage: UNK
     Route: 065
     Dates: end: 20220217
  2. FENTANYL [Suspect]
     Active Substance: FENTANYL
     Indication: Breast operation
     Dosage: UNK
     Route: 065
     Dates: start: 20211228, end: 20211228
  3. TRAZODONE [Suspect]
     Active Substance: TRAZODONE HYDROCHLORIDE
     Indication: Anxiety
     Dosage: UNK, PRN
     Route: 065
     Dates: end: 20220217
  4. BOTOX [Suspect]
     Active Substance: ONABOTULINUMTOXINA
     Indication: Migraine prophylaxis
     Dosage: UNK UNK, SINGLE
     Route: 065
     Dates: start: 202112, end: 202112
  5. ATOGEPANT [Suspect]
     Active Substance: ATOGEPANT
     Indication: Headache
     Dosage: 60 MILLIGRAM, Q.O.D.
     Route: 065
     Dates: end: 20220217
  6. ATOGEPANT [Suspect]
     Active Substance: ATOGEPANT
     Dosage: 60 MILLIGRAM, QD
     Route: 065
     Dates: start: 20211013
  7. LINZESS [Suspect]
     Active Substance: LINACLOTIDE
     Indication: Constipation
     Dosage: UNK
     Route: 065
     Dates: end: 20220217
  8. ADDERALL [Suspect]
     Active Substance: AMPHETAMINE ASPARTATE\AMPHETAMINE SULFATE\DEXTROAMPHETAMINE SACCHARATE\DEXTROAMPHETAMINE SULFATE
     Indication: Attention deficit hyperactivity disorder
     Dosage: UNK
     Route: 065
     Dates: end: 20220217
  9. KLONOPIN [Suspect]
     Active Substance: CLONAZEPAM
     Indication: Product used for unknown indication
     Dosage: UNK
     Route: 065
     Dates: end: 20220217
  10. SUCCINYLCHOLINE CHLORIDE [Suspect]
     Active Substance: SUCCINYLCHOLINE CHLORIDE
     Indication: Breast operation
     Dosage: UNK
     Route: 065
     Dates: start: 20211228, end: 20211228
  11. ROCURONIUM [Suspect]
     Active Substance: ROCURONIUM BROMIDE
     Indication: Breast operation
     Dosage: UNK
     Route: 065
     Dates: start: 20211228, end: 20211228
  12. CEFAZOLIN SODIUM [Suspect]
     Active Substance: CEFAZOLIN SODIUM
     Indication: Product used for unknown indication
     Dosage: 2 MILLIGRAM
     Route: 065
  13. MIRALAX [Suspect]
     Active Substance: POLYETHYLENE GLYCOL 3350
     Indication: Constipation
     Dosage: UNK
     Route: 065
     Dates: end: 20220217
  14. FLUCONAZOLE [Suspect]
     Active Substance: FLUCONAZOLE
     Indication: Vulvovaginal mycotic infection
     Dosage: 150 MILLIGRAM, SINGLE
     Route: 065
     Dates: start: 20220114, end: 20220114
  15. LACTULOSE [Suspect]
     Active Substance: LACTULOSE
     Indication: Constipation
     Dosage: UNK
     Route: 065
     Dates: end: 20220217
  16. CLONAZEPAM [Suspect]
     Active Substance: CLONAZEPAM
     Indication: Anxiety
     Dosage: UNK PRN
     Route: 065
     Dates: end: 20220217

REACTIONS (5)
  - Multiple organ dysfunction syndrome [Unknown]
  - Acute hepatic failure [Not Recovered/Not Resolved]
  - Breast operation [Unknown]
  - Vulvovaginal mycotic infection [Unknown]
  - Constipation [Not Recovered/Not Resolved]

NARRATIVE: CASE EVENT DATE: 20220104
